FAERS Safety Report 18529506 (Version 2)
Quarter: 2020Q4

REPORT INFORMATION
  Report Type: Spontaneous
  Country: US (occurrence: US)
  Receive Date: 20201120
  Receipt Date: 20201215
  Transmission Date: 20210114
  Serious: Yes (Death, Hospitalization)
  Sender: FDA-Public Use
  Company Number: US-TEVA-2020-US-1848944

PATIENT
  Age: 3 Year
  Sex: Female

DRUGS (13)
  1. DOXORUBICIN [Suspect]
     Active Substance: DOXORUBICIN
     Indication: SALVAGE THERAPY
  2. VINCRISTINE [Suspect]
     Active Substance: VINCRISTINE
     Indication: SALVAGE THERAPY
     Dosage: PART OF CHILDREN^S ONCOLOGY GROUP (COG) PROTOCOL AREN0321 REGIMEN I; SIX MONTHS OF SALVAGE R...
     Route: 065
  3. CYCLOPHOSPHAMIDE. [Suspect]
     Active Substance: CYCLOPHOSPHAMIDE
     Indication: NEPHROBLASTOMA
     Dosage: PART OF CHILDREN^S ONCOLOGY GROUP (COG) PROTOCOL AREN0321 REGIMEN I; SIX MONTHS OF SALVAGE R...
     Route: 065
  4. DEXAMETHASONE. [Concomitant]
     Active Substance: DEXAMETHASONE
     Indication: EPSTEIN-BARR VIRUS ASSOCIATED LYMPHOPROLIFERATIVE DISORDER
     Dosage: INITIAL DOSE NOT STATED
     Route: 065
  5. LEVETIRACETAM. [Suspect]
     Active Substance: LEVETIRACETAM
     Indication: STATUS EPILEPTICUS
     Route: 042
  6. FOSPHENYTOIN [Suspect]
     Active Substance: FOSPHENYTOIN
     Indication: STATUS EPILEPTICUS
     Route: 065
  7. CYCLOPHOSPHAMIDE. [Suspect]
     Active Substance: CYCLOPHOSPHAMIDE
     Indication: SALVAGE THERAPY
  8. VINCRISTINE [Suspect]
     Active Substance: VINCRISTINE
     Indication: NEPHROBLASTOMA
     Dosage: PART OF CHILDREN^S ONCOLOGY GROUP (COG) REGIMEN EE4A; FOUR MONTHS OF CHEMOTHERAPY
     Route: 065
  9. DACTINOMYCIN [Suspect]
     Active Substance: DACTINOMYCIN
     Indication: NEPHROBLASTOMA
     Dosage: PART OF CHILDREN^S ONCOLOGY GROUP (COG) REGIMEN EE4A; FOUR MONTHS OF CHEMOTHERAPY
     Route: 065
  10. DOXORUBICIN [Suspect]
     Active Substance: DOXORUBICIN
     Indication: NEPHROBLASTOMA
     Dosage: PART OF CHILDREN^S ONCOLOGY GROUP (COG) PROTOCOL AREN0321 REGIMEN I; SIX MONTHS OF SALVAGE R...
     Route: 065
  11. ETOPOSIDE. [Suspect]
     Active Substance: ETOPOSIDE
     Indication: NEPHROBLASTOMA
     Dosage: PART OF CHILDREN^S ONCOLOGY GROUP (COG) PROTOCOL AREN0321 REGIMEN I; SIX MONTHS OF SALVAGE R...
     Route: 065
  12. ETOPOSIDE. [Suspect]
     Active Substance: ETOPOSIDE
     Indication: SALVAGE THERAPY
  13. DEXAMETHASONE. [Concomitant]
     Active Substance: DEXAMETHASONE
     Indication: DIFFUSE LARGE B-CELL LYMPHOMA
     Route: 065

REACTIONS (11)
  - Epstein-Barr virus associated lymphoproliferative disorder [Unknown]
  - Septic shock [Fatal]
  - Pneumonia [Unknown]
  - Pseudomembranous colitis [Unknown]
  - Status epilepticus [Not Recovered/Not Resolved]
  - Lymphoma [Unknown]
  - Hemiparesis [Unknown]
  - Gastrointestinal lymphoma [Unknown]
  - Acute respiratory failure [Fatal]
  - Drug ineffective [Unknown]
  - Diffuse large B-cell lymphoma [Unknown]
